FAERS Safety Report 10813491 (Version 2)
Quarter: 2015Q1

REPORT INFORMATION
  Report Type: Spontaneous
  Country: US (occurrence: US)
  Receive Date: 20150218
  Receipt Date: 20150319
  Transmission Date: 20150721
  Serious: Yes (Other)
  Sender: FDA-Public Use
  Company Number: US-PFIZER INC-2015053667

PATIENT
  Age: 35 Year
  Sex: Female

DRUGS (2)
  1. AZULFIDINE [Suspect]
     Active Substance: SULFASALAZINE
     Indication: COLITIS ULCERATIVE
     Dosage: UNK
     Route: 048
  2. BALSALAZIDE [Suspect]
     Active Substance: BALSALAZIDE
     Dosage: UNK

REACTIONS (1)
  - Pneumonitis [Recovered/Resolved]
